FAERS Safety Report 19888558 (Version 3)
Quarter: 2022Q2

REPORT INFORMATION
  Report Type: Spontaneous
  Country: US (occurrence: US)
  Receive Date: 20210927
  Receipt Date: 20220426
  Transmission Date: 20220721
  Serious: No
  Sender: FDA-Public Use
  Company Number: US-PFIZER INC-2021671848

PATIENT
  Age: 69 Year
  Sex: Female
  Weight: 83.1 kg

DRUGS (8)
  1. CHANTIX [Suspect]
     Active Substance: VARENICLINE TARTRATE
     Indication: Smoking cessation therapy
     Dosage: 0.5 DF (A HALF OF A PILL FOR 2 WEEKS)
     Dates: start: 20210331
  2. CHANTIX [Suspect]
     Active Substance: VARENICLINE TARTRATE
     Dosage: UNK
  3. CHANTIX [Suspect]
     Active Substance: VARENICLINE TARTRATE
     Dosage: UNK
  4. CHANTIX [Suspect]
     Active Substance: VARENICLINE TARTRATE
     Dosage: 1 MG
     Dates: start: 202105
  5. CHANTIX [Suspect]
     Active Substance: VARENICLINE TARTRATE
     Dosage: 0.5 DF, ONCE A DAY (HALF A TABLET ONCE DAY FOR 3 DAY)
     Dates: start: 202105
  6. CHANTIX [Suspect]
     Active Substance: VARENICLINE TARTRATE
     Dosage: 0.5 DF, TWICE DAILY (HALF A TABLET TO TWICE DAILY FOR 4 DAYS)
     Dates: start: 202105
  7. CHANTIX [Suspect]
     Active Substance: VARENICLINE TARTRATE
     Dosage: 1 MG, TWICE DAILY
     Dates: start: 202105
  8. CHANTIX [Suspect]
     Active Substance: VARENICLINE TARTRATE
     Dosage: 1.5 MG, DAILY, (1 MG, ONE IN THE MORNING AND ONE HALF IN EVENING )

REACTIONS (8)
  - Malaise [Unknown]
  - Nightmare [Unknown]
  - Fall [Unknown]
  - Abnormal dreams [Unknown]
  - Arthritis [Unknown]
  - Insomnia [Unknown]
  - Recalled product administered [Unknown]
  - Off label use [Unknown]

NARRATIVE: CASE EVENT DATE: 20210331
